FAERS Safety Report 20429563 (Version 2)
Quarter: 2022Q3

REPORT INFORMATION
  Report Type: Report from Study
  Country: FR (occurrence: FR)
  Receive Date: 20220204
  Receipt Date: 20220708
  Transmission Date: 20221027
  Serious: Yes (Life-Threatening, Hospitalization)
  Sender: FDA-Public Use
  Company Number: FRA201900908

PATIENT

DRUGS (7)
  1. PEGASPARGASE [Suspect]
     Active Substance: PEGASPARGASE
     Indication: Acute lymphocytic leukaemia
     Dosage: 1800 IU
     Route: 042
     Dates: start: 20190921, end: 20190921
  2. VINCRISTINE [Suspect]
     Active Substance: VINCRISTINE
     Indication: Acute lymphocytic leukaemia
     Dosage: 1.1 MG ON D8 AND D15
     Route: 042
     Dates: start: 20190917, end: 20191007
  3. DAUNORUBICIN [Suspect]
     Active Substance: DAUNORUBICIN
     Indication: Acute lymphocytic leukaemia
     Dosage: 21 MG ON D8 AND D15
     Route: 042
     Dates: start: 20190917, end: 20191007
  4. METHOTREXATE [Suspect]
     Active Substance: METHOTREXATE
     Indication: Acute lymphocytic leukaemia
     Dosage: 12 MG ON D1 (PREPHASE), D9, D13, D18. D24
     Route: 037
     Dates: start: 20190910, end: 20191007
  5. CYTARABINE [Suspect]
     Active Substance: CYTARABINE
     Indication: Acute lymphocytic leukaemia
     Dosage: 30 MG ON D13
     Route: 037
     Dates: start: 20190918, end: 20191007
  6. HYDROCORTISONE [Suspect]
     Active Substance: HYDROCORTISONE
     Indication: Acute lymphocytic leukaemia
     Dosage: 15 MG ON D9, D13 AND D18
     Route: 037
     Dates: start: 20190918, end: 20191007
  7. METHYLPREDNISOLONE [Suspect]
     Active Substance: METHYLPREDNISOLONE
     Indication: Acute lymphocytic leukaemia
     Dosage: 44 MG, FROM D1
     Route: 042
     Dates: start: 20190910, end: 20191007

REACTIONS (2)
  - Pseudomonal sepsis [Recovered/Resolved]
  - Soft tissue necrosis [Recovered/Resolved]

NARRATIVE: CASE EVENT DATE: 20190928
